FAERS Safety Report 19162746 (Version 2)
Quarter: 2021Q2

REPORT INFORMATION
  Report Type: Spontaneous
  Country: US (occurrence: US)
  Receive Date: 20210421
  Receipt Date: 20210504
  Transmission Date: 20210717
  Serious: No
  Sender: FDA-Public Use
  Company Number: US-LUPIN PHARMACEUTICALS INC.-2021-04863

PATIENT
  Age: 58 Year
  Sex: Female

DRUGS (8)
  1. MODAFINIL. [Suspect]
     Active Substance: MODAFINIL
     Dosage: UNK, LOWEST POSSIBLE DOSE
     Route: 065
  2. ALPRAZOLAM. [Suspect]
     Active Substance: ALPRAZOLAM
     Dosage: UNK UNK, QD, VERY SMALL DOSES MULTIPLE TIMES A DAY
     Route: 065
  3. DIVALPROEX SODIUM. [Suspect]
     Active Substance: DIVALPROEX SODIUM
     Dosage: DOSING DIVALPROEX SODIUM DAILY WITH AN ADDITIONAL DOSE EVERY 3 DAYS
     Route: 065
  4. ALPRAZOLAM. [Suspect]
     Active Substance: ALPRAZOLAM
     Indication: PSYCHIATRIC SYMPTOM
     Dosage: UNK
     Route: 065
  5. DIVALPROEX SODIUM. [Suspect]
     Active Substance: DIVALPROEX SODIUM
     Indication: PSYCHIATRIC SYMPTOM
     Dosage: UNK
     Route: 065
  6. ALPRAZOLAM. [Suspect]
     Active Substance: ALPRAZOLAM
     Dosage: UNK, LOWEST POSSIBLE DOSE
     Route: 065
  7. MODAFINIL. [Suspect]
     Active Substance: MODAFINIL
     Indication: PSYCHIATRIC SYMPTOM
     Dosage: UNK
     Route: 065
  8. MODAFINIL. [Suspect]
     Active Substance: MODAFINIL
     Dosage: UNK UNK, QD, VERY SMALL DOSES MULTIPLE TIMES A DAY
     Route: 065

REACTIONS (4)
  - Intentional product use issue [Unknown]
  - Affect lability [Unknown]
  - Drug intolerance [Unknown]
  - Anxiety [Unknown]
